FAERS Safety Report 25664840 (Version 3)
Quarter: 2025Q4

REPORT INFORMATION
  Report Type: Spontaneous
  Country: US (occurrence: US)
  Receive Date: 20250811
  Receipt Date: 20251008
  Transmission Date: 20260118
  Serious: No
  Sender: GILEAD
  Company Number: US-GILEAD-2025-0723547

PATIENT
  Age: 37 Year
  Sex: Male
  Weight: 94.5 kg

DRUGS (1)
  1. EPCLUSA [Suspect]
     Active Substance: SOFOSBUVIR\VELPATASVIR
     Indication: Hepatitis C
     Dosage: 400MG/100MG
     Route: 048
     Dates: start: 20250707, end: 20250710

REACTIONS (10)
  - Pruritus [Unknown]
  - Dyspnoea [Unknown]
  - Swelling face [Unknown]
  - Throat irritation [Unknown]
  - Periorbital oedema [Unknown]
  - Peripheral swelling [Unknown]
  - Swelling of eyelid [Unknown]
  - Wheezing [Unknown]
  - Pharyngeal swelling [Unknown]
  - Drug hypersensitivity [Unknown]

NARRATIVE: CASE EVENT DATE: 20250709
